FAERS Safety Report 10546918 (Version 1)
Quarter: 2014Q4

REPORT INFORMATION
  Report Type: Spontaneous
  Country: US (occurrence: US)
  Receive Date: 20141027
  Receipt Date: 20141027
  Transmission Date: 20150529
  Serious: Yes (Other)
  Sender: FDA-Public Use
  Company Number: US-ABBVIE-14P-163-1294039-00

PATIENT
  Sex: Female
  Weight: 61.29 kg

DRUGS (4)
  1. LUPRON DEPOT [Suspect]
     Active Substance: LEUPROLIDE ACETATE
     Indication: PRODUCT USED FOR UNKNOWN INDICATION
     Dosage: UNKNOWN DOSE
     Route: 030
     Dates: start: 2007, end: 2007
  2. NORETHINDRONE. [Concomitant]
     Active Substance: NORETHINDRONE
     Indication: HORMONE REPLACEMENT THERAPY
  3. LUPRON DEPOT [Suspect]
     Active Substance: LEUPROLIDE ACETATE
     Indication: ENDOMETRIOSIS
     Route: 030
     Dates: start: 20140930
  4. NORETHINDRONE. [Concomitant]
     Active Substance: NORETHINDRONE
     Indication: PROPHYLAXIS
     Route: 048
     Dates: start: 201409

REACTIONS (5)
  - Hot flush [Not Recovered/Not Resolved]
  - Ovarian cyst [Recovered/Resolved]
  - Menstruation irregular [Not Recovered/Not Resolved]
  - Endometriosis [Not Recovered/Not Resolved]
  - Endometrial neoplasm [Not Recovered/Not Resolved]

NARRATIVE: CASE EVENT DATE: 2011
